FAERS Safety Report 6386261-0 (Version None)
Quarter: 2009Q4

REPORT INFORMATION
  Report Type: 
  Country: None (occurrence: None)
  Receive Date: 20091002
  Receipt Date: 20090825
  Transmission Date: 20100525
  Serious: No
  Sender: FDA-Public Use
  Company Number: US-BAYER-200913914BCC

PATIENT
  Age: 85 Year
  Sex: Female
  Weight: 53 kg

DRUGS (8)
  1. ALEVE [Suspect]
     Indication: BACK PAIN
     Dosage: TOTAL DAILY DOSE: 220 MG  UNIT DOSE: 220 MG
     Route: 048
     Dates: start: 20090824, end: 20090824
  2. AGGRENOX [Concomitant]
     Route: 065
  3. ATENOL [Concomitant]
     Dosage: AS USED: 25 MG  UNIT DOSE: 25 MG
     Route: 065
  4. DOXYCYCL [Concomitant]
     Route: 065
  5. NORVASC [Concomitant]
     Route: 065
  6. A-Z MULTIVITAMIN [Concomitant]
     Route: 065
  7. CVS CALCIUM CITRATE PLUS D [Concomitant]
     Route: 065
  8. LEVAQUIN [Concomitant]
     Route: 065

REACTIONS (5)
  - BLOOD PRESSURE DECREASED [None]
  - DIZZINESS [None]
  - FATIGUE [None]
  - FEELING ABNORMAL [None]
  - GAIT DISTURBANCE [None]
